FAERS Safety Report 10080621 (Version 1)
Quarter: 2014Q2

REPORT INFORMATION
  Report Type: Spontaneous
  Country: CA (occurrence: None)
  Receive Date: 20140414
  Receipt Date: 20140414
  Transmission Date: 20141212
  Serious: Yes (Other)
  Sender: FDA-Public Use
  Company Number: 2014SA039896

PATIENT
  Sex: Male

DRUGS (1)
  1. ICY HOT ARM NECK LEG AND SMALL AREAS [Suspect]
     Indication: TENDONITIS

REACTIONS (3)
  - Skin irritation [None]
  - Thermal burn [None]
  - No therapeutic response [None]
